FAERS Safety Report 5359890-0 (Version None)
Quarter: 2007Q2

REPORT INFORMATION
  Report Type: 
  Country: None (occurrence: None)
  Receive Date: 20070531
  Receipt Date: 20070319
  Transmission Date: 20071010
  Serious: Yes (Hospitalization, Other)
  Sender: FDA-Public Use
  Company Number: WAES 0703USA03699

PATIENT
  Age: 43 Year
  Sex: Male
  Weight: 85.7298 kg

DRUGS (3)
  1. EMEND [Suspect]
     Indication: PROPHYLAXIS
  2. ETOPOSIDE [Suspect]
     Indication: TESTIS CANCER
     Dosage: 200 MG/DAILY/IV
     Route: 042
     Dates: start: 20070212, end: 20070308
  3. CISPLATIN [Suspect]
     Indication: TESTIS CANCER
     Dosage: 40 MG/DAILY/IV
     Route: 042
     Dates: start: 20070212, end: 20070308

REACTIONS (1)
  - NEUTROPENIA [None]
